FAERS Safety Report 9413283 (Version 1)
Quarter: 2013Q3

REPORT INFORMATION
  Report Type: Spontaneous
  Country: UA (occurrence: UA)
  Receive Date: 20130722
  Receipt Date: 20130722
  Transmission Date: 20140515
  Serious: Yes (Hospitalization)
  Sender: FDA-Public Use
  Company Number: CHPA2013UA011496

PATIENT
  Age: 72 Year
  Sex: Female

DRUGS (1)
  1. TAVEGYL [Suspect]
     Indication: ASTHMA
     Dosage: 2 ML, BID
     Route: 030
     Dates: start: 20100210

REACTIONS (5)
  - Pruritus [Recovered/Resolved]
  - Chills [Recovered/Resolved]
  - Rash [Recovered/Resolved]
  - Dyspnoea [Recovered/Resolved]
  - Headache [Recovered/Resolved]
